FAERS Safety Report 6518015-6 (Version None)
Quarter: 2009Q4

REPORT INFORMATION
  Report Type: 
  Country: None (occurrence: None)
  Receive Date: 20091224
  Receipt Date: 20091214
  Transmission Date: 20100525
  Serious: Yes (Death, Other)
  Sender: FDA-Public Use
  Company Number: US-BRISTOL-MYERS SQUIBB COMPANY-14894810

PATIENT
  Age: 66 Year
  Sex: Male

DRUGS (4)
  1. CYCLOPHOSPHAMIDE [Suspect]
     Indication: ANGIOCENTRIC LYMPHOMA
  2. DOXORUBICIN HCL [Suspect]
     Indication: ANGIOCENTRIC LYMPHOMA
  3. VINCRISTINE [Suspect]
     Indication: ANGIOCENTRIC LYMPHOMA
  4. PREDNISOLONE [Suspect]
     Indication: ANGIOCENTRIC LYMPHOMA

REACTIONS (3)
  - PANCYTOPENIA [None]
  - RENAL FAILURE ACUTE [None]
  - SEPTIC SHOCK [None]
